FAERS Safety Report 5484398-1 (Version None)
Quarter: 2007Q4

REPORT INFORMATION
  Report Type: 
  Country: None (occurrence: None)
  Receive Date: 20071009
  Receipt Date: 20070920
  Transmission Date: 20080405
  Serious: Yes (Hospitalization)
  Sender: FDA-Public Use
  Company Number: 161869ISR

PATIENT
  Age: 40 Year
  Sex: Male

DRUGS (1)
  1. CARBAMAZEPINE [Suspect]
     Indication: GRAND MAL CONVULSION
     Dosage: ORAL
     Route: 048

REACTIONS (6)
  - AGITATION [None]
  - ANTEROGRADE AMNESIA [None]
  - ENCEPHALITIS HERPES [None]
  - GRAND MAL CONVULSION [None]
  - HYPOGAMMAGLOBULINAEMIA [None]
  - TREATMENT NONCOMPLIANCE [None]
